FAERS Safety Report 6549331-X (Version None)
Quarter: 2010Q1

REPORT INFORMATION
  Report Type: 
  Country: None (occurrence: None)
  Receive Date: 20100125
  Receipt Date: 20100111
  Transmission Date: 20100710
  Serious: Yes (Other)
  Sender: FDA-Public Use
  Company Number: PHHY2010DE01829

PATIENT
  Sex: Female

DRUGS (1)
  1. ACLASTA [Suspect]
     Indication: OSTEOPOROSIS
     Dosage: 5 MG/YEAR
     Route: 042
     Dates: start: 20100106, end: 20100106

REACTIONS (7)
  - ABDOMINAL DISCOMFORT [None]
  - CONSTIPATION [None]
  - HEADACHE [None]
  - INFLUENZA LIKE ILLNESS [None]
  - PALPITATIONS [None]
  - SLEEP DISORDER [None]
  - VENTRICULAR EXTRASYSTOLES [None]
